FAERS Safety Report 10481873 (Version 1)
Quarter: 2014Q3

REPORT INFORMATION
  Report Type: Spontaneous
  Country: US (occurrence: None)
  Receive Date: 20140908
  Receipt Date: 20140908
  Transmission Date: 20150326
  Serious: Yes (Other)
  Sender: FDA-Public Use
  Company Number: 396424

PATIENT
  Sex: Male

DRUGS (4)
  1. HUMAMLOG MIX25 (INSULIN LISPRO, INSULIN PROTAMINE SUSPENSION) [Concomitant]
  2. LISPRO PROTAMINE SUSPENSION [Concomitant]
  3. METFORMIN [Concomitant]
     Active Substance: METFORMIN HYDROCHLORIDE
  4. VICTOZA [Suspect]
     Active Substance: LIRAGLUTIDE
     Indication: TYPE 2 DIABETES MELLITUS
     Route: 058
     Dates: start: 20131219, end: 20131219

REACTIONS (3)
  - Blood glucose decreased [None]
  - Pain in extremity [None]
  - Hypersensitivity [None]

NARRATIVE: CASE EVENT DATE: 20131219
